FAERS Safety Report 16285204 (Version 1)
Quarter: 2019Q2

REPORT INFORMATION
  Report Type: Spontaneous
  Country: NL (occurrence: NL)
  Receive Date: 20190508
  Receipt Date: 20190508
  Transmission Date: 20190711
  Serious: Yes (Other)
  Sender: FDA-Public Use
  Company Number: NL-ACCORD-126337

PATIENT
  Age: 73 Year
  Sex: Male
  Weight: 100 kg

DRUGS (18)
  1. UREA. [Concomitant]
     Active Substance: UREA
     Dosage: 2 DOSES, 1 OP 14 EN 1 OP 15-11),
     Dates: start: 20181115
  2. CLEMASTINE [Concomitant]
     Active Substance: CLEMASTINE
     Dosage: ONLY ONCE
     Dates: start: 20181115
  3. FENTANYL. [Concomitant]
     Active Substance: FENTANYL
     Dosage: APPROX 50MCG / HOUR
     Dates: start: 20181116
  4. VANCOMYCIN [Suspect]
     Active Substance: VANCOMYCIN
     Indication: DEVICE RELATED INFECTION
     Dosage: 3500MG / 24H CONTINUOUS
     Dates: start: 20181104, end: 20181117
  5. PARACETAMOL [Concomitant]
     Active Substance: ACETAMINOPHEN
     Dosage: 4 DD 1 G
  6. MIDAZOLAM [Concomitant]
     Active Substance: MIDAZOLAM HYDROCHLORIDE
     Dosage: 1DD 7.5MG
     Dates: start: 20181112
  7. AMLODIPINE [Concomitant]
     Active Substance: AMLODIPINE BESYLATE
     Dosage: 1 DD 5 MG
  8. RIFAMPICIN [Suspect]
     Active Substance: RIFAMPIN
     Indication: PRODUCT USED FOR UNKNOWN INDICATION
     Dosage: 2DD 450MG
     Dates: start: 20181025
  9. ZOPICLONE [Concomitant]
     Active Substance: ZOPICLONE
     Dosage: 1DD 7.5MG
     Dates: start: 20181106
  10. NADROPARIN [Concomitant]
     Active Substance: NADROPARIN
     Dosage: 2850 IE
     Dates: start: 20181019
  11. CIPROFLOXACIN/CIPROFLOXACIN HYDROCHLORIDE/CIPROFLOXACIN LACTATE [Suspect]
     Active Substance: CIPROFLOXACIN
     Indication: PRODUCT USED FOR UNKNOWN INDICATION
     Dosage: 2DD 750MG PER OS
     Dates: start: 20181108
  12. LOSARTAN. [Concomitant]
     Active Substance: LOSARTAN
     Dosage: 2 DD 50 MG
  13. ACETYLSALICYLIC ACID [Concomitant]
     Active Substance: ASPIRIN
     Dosage: 1 DD 80 MG
  14. TAMSULOSIN/TAMSULOSIN HYDROCHLORIDE [Concomitant]
     Active Substance: TAMSULOSIN HYDROCHLORIDE
     Dosage: 1DD 0.4MG
  15. CLONAZEPAM. [Concomitant]
     Active Substance: CLONAZEPAM
     Dosage: 1DD 0.5MG
  16. ROSUVASTATIN. [Suspect]
     Active Substance: ROSUVASTATIN
     Indication: PRODUCT USED FOR UNKNOWN INDICATION
     Dosage: 1DD 2.5MG
  17. CARBIDOPA/LEVODOPA [Concomitant]
     Active Substance: CARBIDOPA\LEVODOPA
     Dosage: 1DD 2 TABLET 100/25MG
  18. PRAMIPEXOLE/PRAMIPEXOLE DIHYDROCHLORIDE [Concomitant]
     Dosage: 1DD 0.75MG

REACTIONS (1)
  - Toxic epidermal necrolysis [Recovered/Resolved]

NARRATIVE: CASE EVENT DATE: 20181116
